FAERS Safety Report 10443350 (Version 8)
Quarter: 2024Q1

REPORT INFORMATION
  Report Type: Other
  Country: CA (occurrence: None)
  Receive Date: 20140910
  Receipt Date: 20240116
  Transmission Date: 20240409
  Serious: Yes (Other)
  Sender: FDA-Public Use
  Company Number: CA-ROCHE-1186023

PATIENT
  Age: 53 Year
  Sex: Female
  Weight: 65.3 kg

DRUGS (22)
  1. ACTEMRA [Suspect]
     Active Substance: TOCILIZUMAB
     Indication: Rheumatoid arthritis
     Route: 042
     Dates: start: 20121016, end: 20130724
  2. ACTEMRA [Suspect]
     Active Substance: TOCILIZUMAB
     Route: 042
     Dates: start: 20130121
  3. ACTEMRA [Suspect]
     Active Substance: TOCILIZUMAB
     Route: 042
     Dates: start: 20130327
  4. ACTEMRA [Suspect]
     Active Substance: TOCILIZUMAB
     Route: 042
     Dates: start: 20130424
  5. ACTEMRA [Suspect]
     Active Substance: TOCILIZUMAB
     Route: 042
     Dates: start: 20130529
  6. ACTEMRA [Suspect]
     Active Substance: TOCILIZUMAB
     Route: 042
     Dates: start: 20130626
  7. ACTEMRA [Suspect]
     Active Substance: TOCILIZUMAB
     Route: 042
     Dates: start: 20130724, end: 20130724
  8. RITUXAN [Suspect]
     Active Substance: RITUXIMAB
     Indication: Rheumatoid arthritis
     Dosage: FREQUENCY: DAY 1 AND DAY 15?SUBSEQUENT DOSE ON 30/APR/2014.?LAST DOSE ON 06/JUN/2017
     Route: 042
     Dates: start: 20130926, end: 20210830
  9. METHOTREXATE [Suspect]
     Active Substance: METHOTREXATE
     Indication: Product used for unknown indication
     Route: 042
  10. CELEBREX [Concomitant]
     Active Substance: CELECOXIB
  11. FOLIC ACID [Concomitant]
     Active Substance: FOLIC ACID
  12. FERROUS SULFATE [Concomitant]
     Active Substance: FERROUS SULFATE
  13. NAPROXEN [Concomitant]
     Active Substance: NAPROXEN
  14. CYKLOKAPRON [Concomitant]
     Active Substance: TRANEXAMIC ACID
     Indication: Heavy menstrual bleeding
     Dosage: ONE TO THREE PILLS AS REQUIRED EVERY 8 HOURS
     Route: 048
  15. FOLIC ACID [Concomitant]
     Active Substance: FOLIC ACID
  16. ACETAMINOPHEN [Concomitant]
     Active Substance: ACETAMINOPHEN
     Indication: Premedication
     Route: 048
     Dates: start: 20130926
  17. METHYLPREDNISOLONE [Concomitant]
     Active Substance: METHYLPREDNISOLONE
     Indication: Premedication
     Route: 042
     Dates: start: 20130926
  18. DIPHENHYDRAMINE [Concomitant]
     Active Substance: DIPHENHYDRAMINE
     Indication: Premedication
     Route: 048
     Dates: start: 20130926
  19. CYCLOBENZAPRINE [Concomitant]
     Active Substance: CYCLOBENZAPRINE
  20. DEXILANT [Concomitant]
     Active Substance: DEXLANSOPRAZOLE
     Indication: Product used for unknown indication
  21. ESTROGEL [Concomitant]
     Active Substance: ESTRADIOL
  22. TRAMADOL [Concomitant]
     Active Substance: TRAMADOL\TRAMADOL HYDROCHLORIDE

REACTIONS (22)
  - Anaemia [Not Recovered/Not Resolved]
  - Heavy menstrual bleeding [Unknown]
  - Fibroma [Recovered/Resolved]
  - Uterine disorder [Unknown]
  - Ill-defined disorder [Recovered/Resolved]
  - Therapeutic product effect decreased [Unknown]
  - Gastrointestinal disorder [Unknown]
  - Arthralgia [Not Recovered/Not Resolved]
  - Vulvovaginal discomfort [Unknown]
  - Infusion related reaction [Unknown]
  - Bronchitis [Not Recovered/Not Resolved]
  - Drug intolerance [Unknown]
  - Weight decreased [Unknown]
  - Nausea [Unknown]
  - Malaise [Unknown]
  - Crohn^s disease [Unknown]
  - Influenza [Unknown]
  - Pyrexia [Unknown]
  - Cough [Unknown]
  - Rhinorrhoea [Unknown]
  - Diarrhoea [Unknown]
  - Myalgia [Unknown]

NARRATIVE: CASE EVENT DATE: 20121101
